FAERS Safety Report 7809818-6 (Version None)
Quarter: 2011Q4

REPORT INFORMATION
  Report Type: 
  Country: None (occurrence: None)
  Receive Date: 20111012
  Receipt Date: 20111006
  Transmission Date: 20120403
  Serious: Yes (Other)
  Sender: FDA-Public Use
  Company Number: US-PFIZER INC-2010005261

PATIENT
  Sex: Female
  Weight: 125 kg

DRUGS (4)
  1. DILANTIN [Suspect]
     Indication: TREMOR
     Dosage: 400MG, DAILY
  2. DILANTIN [Suspect]
     Dosage: 300 MG, DAILY
  3. DILANTIN [Suspect]
     Indication: CONVULSION
     Dosage: 300 MG, DAILY
     Dates: start: 19890101
  4. DILANTIN [Suspect]
     Dosage: 3 TABLETS OF 100 MG ON ONE DAY AND 4 TABLETS OF 100 MG DAILY ON OTHER DAY

REACTIONS (2)
  - LIVER DISORDER [None]
  - THROMBOCYTOPENIA [None]
